FAERS Safety Report 13738575 (Version 1)
Quarter: 2017Q3

REPORT INFORMATION
  Report Type: Report from Study
  Country: US (occurrence: US)
  Receive Date: 20170710
  Receipt Date: 20170710
  Transmission Date: 20171127
  Serious: Yes (Other)
  Sender: FDA-Public Use
  Company Number: US-SAOL THERAPEUTICS-2016SAO00995

PATIENT
  Age: 66 Year
  Sex: Female
  Weight: 60.32 kg

DRUGS (6)
  1. COMPOUNDED BACLOFEN [Suspect]
     Active Substance: BACLOFEN
     Dosage: 121.80 ?G, \DAY
     Route: 037
     Dates: start: 20161006
  2. BUPIVACAINE. [Suspect]
     Active Substance: BUPIVACAINE
     Dosage: 9.378 MG, \DAY
     Route: 037
     Dates: start: 20161006
  3. COMPOUNDED BACLOFEN [Suspect]
     Active Substance: BACLOFEN
     Dosage: 93.78 ?G, \DAY
     Route: 037
     Dates: start: 20161006
  4. BUPIVACAINE. [Suspect]
     Active Substance: BUPIVACAINE
     Dosage: 12.180 MG, \DAY
     Route: 037
     Dates: start: 20161006
  5. DILAUDID [Suspect]
     Active Substance: HYDROMORPHONE HYDROCHLORIDE
     Dosage: 1.6240 MG, \DAY
     Route: 037
     Dates: start: 20161006
  6. DILAUDID [Suspect]
     Active Substance: HYDROMORPHONE HYDROCHLORIDE
     Dosage: 1.250 MG, \DAY
     Route: 037
     Dates: start: 20161006

REACTIONS (5)
  - Therapy non-responder [Recovered/Resolved]
  - Device leakage [Recovered/Resolved]
  - Hypoaesthesia [Recovered/Resolved]
  - Pain [Recovered/Resolved]
  - Device kink [Recovered/Resolved]

NARRATIVE: CASE EVENT DATE: 20161006
